FAERS Safety Report 6193928-6 (Version None)
Quarter: 2009Q2

REPORT INFORMATION
  Report Type: 
  Country: None (occurrence: None)
  Receive Date: 20090518
  Receipt Date: 20090506
  Transmission Date: 20091009
  Serious: Yes (Other)
  Sender: FDA-Public Use
  Company Number: PHHY2009ES17483

PATIENT
  Age: 67 Year
  Sex: Female

DRUGS (3)
  1. TRILEPTAL [Suspect]
     Indication: NEURALGIA
     Dosage: 150 MG
  2. OMEPRAZOLE [Concomitant]
  3. CALCITONIN [Concomitant]

REACTIONS (2)
  - CYST [None]
  - VISION BLURRED [None]
